FAERS Safety Report 9349739 (Version 1)
Quarter: 2013Q2

REPORT INFORMATION
  Report Type: Spontaneous
  Country: TW (occurrence: TW)
  Receive Date: 20130614
  Receipt Date: 20130614
  Transmission Date: 20140414
  Serious: Yes (Life-Threatening)
  Sender: FDA-Public Use
  Company Number: TW-PFIZER INC-2013179558

PATIENT
  Age: 59 Year
  Sex: Female
  Weight: 52 kg

DRUGS (2)
  1. ABIPLATIN [Suspect]
     Indication: LUNG NEOPLASM MALIGNANT
     Dosage: 50MG/VIAL (60 MG)
     Route: 041
     Dates: start: 20130529
  2. ALIMTA [Concomitant]
     Indication: LUNG NEOPLASM MALIGNANT
     Dosage: 500MG/VIAL (750 MG)
     Route: 041
     Dates: start: 20130529

REACTIONS (8)
  - Anaphylactic shock [Unknown]
  - Hot flush [Unknown]
  - Abdominal pain [Unknown]
  - Hypotension [Unknown]
  - Diarrhoea [Unknown]
  - Arthropathy [Unknown]
  - Loss of consciousness [Unknown]
  - Asthenia [Unknown]
